FAERS Safety Report 16411363 (Version 3)
Quarter: 2019Q3

REPORT INFORMATION
  Report Type: Spontaneous
  Country: US (occurrence: US)
  Receive Date: 20190610
  Receipt Date: 20190820
  Transmission Date: 20191004
  Serious: No
  Sender: FDA-Public Use
  Company Number: US-ASTRAZENECA-2019SE75375

PATIENT
  Age: 859 Month
  Sex: Female
  Weight: 131.5 kg

DRUGS (2)
  1. TOBRADEX [Concomitant]
     Active Substance: DEXAMETHASONE\TOBRAMYCIN
     Dosage: TWICE A DAY
  2. TUDORZA PRESSAIR [Suspect]
     Active Substance: ACLIDINIUM BROMIDE
     Indication: CHRONIC OBSTRUCTIVE PULMONARY DISEASE
     Route: 055
     Dates: start: 2017

REACTIONS (6)
  - Memory impairment [Unknown]
  - Device damage [Unknown]
  - Visual impairment [Unknown]
  - Device malfunction [Unknown]
  - Dry eye [Unknown]
  - Eye disorder [Unknown]

NARRATIVE: CASE EVENT DATE: 201811
